FAERS Safety Report 7563547-5 (Version None)
Quarter: 2011Q2

REPORT INFORMATION
  Report Type: 
  Country: None (occurrence: None)
  Receive Date: 20110622
  Receipt Date: 20110607
  Transmission Date: 20111010
  Serious: Yes (Hospitalization)
  Sender: FDA-Public Use
  Company Number: US-WATSON-2011-07989

PATIENT
  Sex: Male
  Weight: 66 kg

DRUGS (10)
  1. FERROUS SULFATE TAB [Concomitant]
     Indication: PRODUCT USED FOR UNKNOWN INDICATION
  2. BACID [Concomitant]
     Indication: PRODUCT USED FOR UNKNOWN INDICATION
  3. CASODEX [Concomitant]
     Indication: PRODUCT USED FOR UNKNOWN INDICATION
  4. M.V.I. [Concomitant]
     Indication: PRODUCT USED FOR UNKNOWN INDICATION
  5. PRILOSEC [Concomitant]
     Indication: PRODUCT USED FOR UNKNOWN INDICATION
  6. RAPAFLO [Suspect]
     Indication: BENIGN PROSTATIC HYPERPLASIA
     Dosage: 8 MG, DAILY
     Route: 048
     Dates: start: 20110605
  7. BENICAR [Concomitant]
     Indication: HYPERTENSION
  8. RAPAFLO [Suspect]
     Dosage: 8 MG, DAILY
     Route: 048
     Dates: start: 20110503, end: 20110506
  9. ENABLEX                            /01760402/ [Concomitant]
     Indication: PRODUCT USED FOR UNKNOWN INDICATION
  10. PRAVACHOL [Concomitant]
     Indication: HYPERTENSION
     Dosage: 40 MG, BID
     Route: 048

REACTIONS (5)
  - ANAEMIA [None]
  - RENAL FAILURE ACUTE [None]
  - DIZZINESS [None]
  - DIARRHOEA [None]
  - HYPOTENSION [None]
